FAERS Safety Report 10409236 (Version 1)
Quarter: 2014Q1

REPORT INFORMATION
  Report Type: Spontaneous
  Country: US (occurrence: None)
  Receive Date: 20140131
  Receipt Date: 20140131
  Transmission Date: 20141002
  Serious: Yes (Other)
  Sender: FDA-Public Use
  Company Number: 101366U

PATIENT
  Sex: Female
  Weight: 83 kg

DRUGS (6)
  1. KEPPRA [Suspect]
     Dates: start: 201308
  2. TEGRETOL [Concomitant]
  3. LAMICTAL [Concomitant]
  4. PRAVASTATIN [Concomitant]
  5. HYDROCHLOROTHIAZIDE W/TRIAMTERENE [Concomitant]
  6. ADVIL [Concomitant]

REACTIONS (9)
  - Suicidal ideation [None]
  - Grand mal convulsion [None]
  - Convulsion [None]
  - Depression [None]
  - Crying [None]
  - Vomiting [None]
  - Insomnia [None]
  - Irritability [None]
  - Inappropriate schedule of drug administration [None]
